FAERS Safety Report 8153329-8 (Version None)
Quarter: 2012Q1

REPORT INFORMATION
  Report Type: 
  Country: None (occurrence: None)
  Receive Date: 20120221
  Receipt Date: 20120210
  Transmission Date: 20120608
  Serious: Yes (Other)
  Sender: FDA-Public Use
  Company Number: FR-ELI_LILLY_AND_COMPANY-FR201202002842

PATIENT
  Sex: Male

DRUGS (2)
  1. CARBOPLATIN [Concomitant]
     Dosage: UNK, UNKNOWN
     Route: 042
     Dates: start: 20111010
  2. ALIMTA [Suspect]
     Indication: LUNG NEOPLASM MALIGNANT
     Dosage: 980 MG, PER CYCLE
     Route: 042
     Dates: start: 20111010

REACTIONS (3)
  - ORAL DISORDER [None]
  - GENITAL LESION [None]
  - STAPHYLOCOCCUS TEST POSITIVE [None]
